FAERS Safety Report 21839248 (Version 1)
Quarter: 2023Q1

REPORT INFORMATION
  Report Type: Spontaneous
  Country: US (occurrence: None)
  Receive Date: 20230107
  Receipt Date: 20230107
  Transmission Date: 20230418
  Serious: Yes (Hospitalization)
  Sender: FDA-Public Use
  Company Number: None

PATIENT
  Age: 37 Year
  Sex: Male
  Weight: 96.1 kg

DRUGS (3)
  1. FLUOROURACIL [Suspect]
     Active Substance: FLUOROURACIL
     Dates: end: 20211113
  2. LEUCOVORIN CALCIUM [Suspect]
     Active Substance: LEUCOVORIN CALCIUM
     Dates: end: 20221111
  3. ELOXATIN [Suspect]
     Active Substance: OXALIPLATIN
     Dates: end: 20211111

REACTIONS (2)
  - Pulmonary embolism [None]
  - Pneumonia [None]

NARRATIVE: CASE EVENT DATE: 20211120
